FAERS Safety Report 5338050-3 (Version None)
Quarter: 2007Q2

REPORT INFORMATION
  Report Type: 
  Country: None (occurrence: None)
  Receive Date: 20070327
  Receipt Date: 20070116
  Transmission Date: 20071010
  Serious: Yes (Life-Threatening)
  Sender: FDA-Public Use
  Company Number: 235123

PATIENT
  Age: 41 Year
  Sex: Male
  Weight: 94.8 kg

DRUGS (12)
  1. AVASTIN [Suspect]
     Indication: GLIOBLASTOMA MULTIFORME
     Dosage: 1000MG, Q2W; INTRAVENOUS
     Route: 042
     Dates: start: 20061129
  2. ALBUTEROL SULFATE (ALBUTEROL/ALBUTEROL SULFATE) [Concomitant]
  3. AMBIEN [Concomitant]
  4. CHANTIX [Concomitant]
  5. DEXAMETHASONE TAB [Concomitant]
  6. LEVAQUIN [Concomitant]
  7. LEXAPRO [Concomitant]
  8. NORVASC [Concomitant]
  9. PERCOCET [Concomitant]
  10. TRIAZ (BENZOYL PEROXIDE) [Concomitant]
  11. WELLBUTRIN SR [Concomitant]
  12. XANAX [Concomitant]

REACTIONS (1)
  - PULMONARY EMBOLISM [None]
